FAERS Safety Report 25325022 (Version 1)
Quarter: 2025Q2

REPORT INFORMATION
  Report Type: Spontaneous
  Country: US (occurrence: None)
  Receive Date: 20250516
  Receipt Date: 20250516
  Transmission Date: 20250716
  Serious: Yes (Other)
  Sender: FDA-CTU
  Company Number: None

PATIENT
  Age: 26 Year
  Sex: Female
  Weight: 72 kg

DRUGS (6)
  1. QELBREE [Suspect]
     Active Substance: VILOXAZINE HYDROCHLORIDE
     Indication: Attention deficit hyperactivity disorder
     Dates: start: 20240909, end: 20241215
  2. RITALIN [Suspect]
     Active Substance: METHYLPHENIDATE HYDROCHLORIDE
  3. GUANFACINE [Concomitant]
     Active Substance: GUANFACINE
  4. Zyrtec (OTC) [Concomitant]
  5. KYLEENA [Concomitant]
     Active Substance: LEVONORGESTREL
  6. VITAMINS [Concomitant]
     Active Substance: VITAMINS

REACTIONS (8)
  - Withdrawal syndrome [None]
  - Adverse drug reaction [None]
  - Therapy cessation [None]
  - Illness [None]
  - Loss of personal independence in daily activities [None]
  - Headache [None]
  - Nausea [None]
  - Vomiting [None]

NARRATIVE: CASE EVENT DATE: 20241216
